FAERS Safety Report 6405659-5 (Version None)
Quarter: 2009Q4

REPORT INFORMATION
  Report Type: 
  Country: None (occurrence: None)
  Receive Date: 20091019
  Receipt Date: 20091008
  Transmission Date: 20100525
  Serious: Yes (Hospitalization)
  Sender: FDA-Public Use
  Company Number: B0597830A

PATIENT
  Age: 43 Year
  Sex: Female

DRUGS (6)
  1. AUGMENTIN [Suspect]
     Indication: UPPER RESPIRATORY TRACT INFECTION
     Dosage: 625MG PER DAY
     Route: 048
     Dates: end: 20090101
  2. ALDOCUMAR [Suspect]
     Dosage: 3MG PER DAY
     Route: 048
     Dates: start: 20060809, end: 20090106
  3. ADIRO [Suspect]
     Dosage: 3MG PER DAY
     Route: 048
     Dates: start: 20060809, end: 20090106
  4. COLEMIN [Suspect]
     Route: 048
  5. OMEPRAZOLE [Suspect]
     Dosage: 20MG PER DAY
     Route: 048
     Dates: start: 20060809
  6. PARACETAMOL [Suspect]
     Indication: UPPER RESPIRATORY TRACT INFECTION
     Route: 048
     Dates: end: 20090101

REACTIONS (7)
  - ABDOMINAL PAIN UPPER [None]
  - DIARRHOEA [None]
  - DYSURIA [None]
  - INTRA-ABDOMINAL HAEMATOMA [None]
  - NASOPHARYNGITIS [None]
  - POLYURIA [None]
  - PRODUCTIVE COUGH [None]
